FAERS Safety Report 18928933 (Version 2)
Quarter: 2021Q1

REPORT INFORMATION
  Report Type: Spontaneous
  Country: DE (occurrence: DE)
  Receive Date: 20210223
  Receipt Date: 20210310
  Transmission Date: 20210420
  Serious: Yes (Other)
  Sender: FDA-Public Use
  Company Number: DE-JNJFOC-20210236564

PATIENT
  Sex: Female

DRUGS (3)
  1. RIVAROXABAN [Suspect]
     Active Substance: RIVAROXABAN
     Indication: PRODUCT USED FOR UNKNOWN INDICATION
     Dosage: 15 MG
     Route: 048
  2. RIVAROXABAN [Suspect]
     Active Substance: RIVAROXABAN
     Dosage: 20 UNK
     Route: 048
  3. CORTISONE [Concomitant]
     Active Substance: CORTISONE
     Dosage: UNK

REACTIONS (8)
  - Dyspepsia [Not Recovered/Not Resolved]
  - Eye haemorrhage [Unknown]
  - Cerebrovascular accident [Unknown]
  - Product prescribing issue [Unknown]
  - Epistaxis [Recovered/Resolved]
  - Haemorrhage subcutaneous [Unknown]
  - Incorrect dose administered [Unknown]
  - Monoplegia [Unknown]

NARRATIVE: CASE EVENT DATE: 2020
